FAERS Safety Report 23422032 (Version 1)
Quarter: 2024Q1

REPORT INFORMATION
  Report Type: Spontaneous
  Country: US (occurrence: None)
  Receive Date: 20240119
  Receipt Date: 20240119
  Transmission Date: 20240409
  Serious: Yes (Death)
  Sender: FDA-Public Use
  Company Number: None

PATIENT
  Age: 75 Year
  Sex: Female

DRUGS (1)
  1. LEQEMBI [Suspect]
     Active Substance: LECANEMAB-IRMB
     Dates: start: 20231227, end: 20231227

REACTIONS (8)
  - Nausea [None]
  - Osteoarthritis [None]
  - Loss of consciousness [None]
  - Ventricular fibrillation [None]
  - Myocardial ischaemia [None]
  - Electrocardiogram ST segment elevation [None]
  - Bradycardia [None]
  - Hypotension [None]

NARRATIVE: CASE EVENT DATE: 20231227
